FAERS Safety Report 5110646-3 (Version None)
Quarter: 2006Q3

REPORT INFORMATION
  Report Type: 
  Country: None (occurrence: None)
  Receive Date: 20060731
  Receipt Date: 20060612
  Transmission Date: 20061208
  Serious: No
  Sender: FDA-Public Use
  Company Number: 2006PV015446

PATIENT
  Age: 60 Year
  Sex: Female
  Weight: 121.564 kg

DRUGS (3)
  1. BYETTA [Suspect]
     Indication: DIABETES MELLITUS NON-INSULIN-DEPENDENT
     Dosage: 5 MCG;BID;SC
     Route: 058
     Dates: start: 20060425
  2. GLUCOPHAGE [Concomitant]
  3. TAGAMET [Concomitant]

REACTIONS (4)
  - CONDITION AGGRAVATED [None]
  - DIARRHOEA [None]
  - ENERGY INCREASED [None]
  - WEIGHT DECREASED [None]
